FAERS Safety Report 10888075 (Version 1)
Quarter: 2015Q1

REPORT INFORMATION
  Report Type: Spontaneous
  Country: US (occurrence: US)
  Receive Date: 20150304
  Receipt Date: 20150304
  Transmission Date: 20150721
  Serious: Yes (Hospitalization, Other)
  Sender: FDA-Public Use
  Company Number: US-AMGEN-USASP2014032551

PATIENT
  Age: 62 Year
  Sex: Female
  Weight: 87.07 kg

DRUGS (29)
  1. CLONAZEPAM. [Concomitant]
     Active Substance: CLONAZEPAM
     Dosage: 3 MG, QD
     Route: 048
  2. HYDROCODONE BITARTRATE AND ACETAMINOPHEN [Concomitant]
     Active Substance: ACETAMINOPHEN\HYDROCODONE BITARTRATE
     Dosage: UNK
     Route: 048
     Dates: start: 20140303, end: 20140508
  3. PLAQUENIL [Concomitant]
     Active Substance: HYDROXYCHLOROQUINE SULFATE
     Dosage: 400 MG, QD
     Route: 048
  4. AMLODIPINE [Concomitant]
     Active Substance: AMLODIPINE BESYLATE
     Dosage: 10, MG, QD
     Route: 048
     Dates: start: 20140211
  5. PRIMIDONE. [Concomitant]
     Active Substance: PRIMIDONE
     Dosage: 50 MG, BID
     Route: 048
     Dates: start: 20140128
  6. PANTOPRAZOLE [Concomitant]
     Active Substance: PANTOPRAZOLE SODIUM
     Dosage: 40 MG, QD
     Route: 048
     Dates: start: 20140121
  7. TRETINOIN. [Concomitant]
     Active Substance: TRETINOIN
     Dosage: 0.025 %, UNK
     Dates: start: 20130701
  8. DIFLUCAN [Concomitant]
     Active Substance: FLUCONAZOLE
     Dosage: 200 MG, QD
     Route: 048
     Dates: start: 20140321, end: 20140508
  9. MIRALAX [Concomitant]
     Active Substance: POLYETHYLENE GLYCOL 3350
     Dosage: 527 G, UNK, AS NEEDED
     Dates: start: 20140121
  10. ENBREL [Suspect]
     Active Substance: ETANERCEPT
     Indication: ANKYLOSING SPONDYLITIS
     Dosage: UNK UNK, QWK
     Route: 065
     Dates: start: 201306, end: 2014
  11. TRAMADOL [Concomitant]
     Active Substance: TRAMADOL
     Dosage: 50 MG, UNK, AS NEEDED
     Route: 048
     Dates: start: 20140312
  12. LEVOTHYROXINE [Concomitant]
     Active Substance: LEVOTHYROXINE
     Dosage: 112 UNK, QD, MCG
     Route: 048
     Dates: start: 20040121
  13. ARIPIPRAZOLE. [Concomitant]
     Active Substance: ARIPIPRAZOLE
     Dosage: 15 MG, QD
     Route: 048
     Dates: start: 20071217
  14. METOPROLOL TARTRATE. [Concomitant]
     Active Substance: METOPROLOL TARTRATE
     Dosage: 100 MG, BID
     Route: 048
     Dates: start: 20140121
  15. EFLORNITHINE HYDROCHLORIDE [Concomitant]
     Active Substance: EFLORNITHINE HYDROCHLORIDE
     Dosage: 13.9 %, BID
     Dates: start: 20131112
  16. TEMAZEPAM. [Concomitant]
     Active Substance: TEMAZEPAM
     Dosage: 15 MG, UNK
     Route: 048
  17. LAMICTAL [Concomitant]
     Active Substance: LAMOTRIGINE
     Dosage: 100 MG, UNK, 1/2 AT DINNER
     Route: 048
  18. VITAMIN D3 [Concomitant]
     Active Substance: CHOLECALCIFEROL
     Dosage: 1000 UNIT, QD
     Route: 048
     Dates: start: 20140121
  19. LORATADINE. [Concomitant]
     Active Substance: LORATADINE
     Indication: HYPERSENSITIVITY
     Dosage: 10 MG, UNK, AS NEEDED
     Route: 048
     Dates: start: 20140121
  20. TRAZODONE [Concomitant]
     Active Substance: TRAZODONE HYDROCHLORIDE
     Dosage: 100 MG, UNK, 1/2 AT DINNER, 3 AT HS
  21. OXCARBAZEPINE. [Concomitant]
     Active Substance: OXCARBAZEPINE
     Dosage: 300 MG,5 TABS AT BEDTIME.
     Route: 048
  22. PIROXICAM. [Concomitant]
     Active Substance: PIROXICAM
     Dosage: 20 MG, QD
     Route: 048
     Dates: start: 20140312
  23. LISINOPRIL. [Concomitant]
     Active Substance: LISINOPRIL
     Dosage: 40 MG, QD
     Route: 048
     Dates: start: 20140121
  24. DOXAZOSIN [Concomitant]
     Active Substance: DOXAZOSIN\DOXAZOSIN MESYLATE
     Dosage: 1 MG, QD
     Route: 048
     Dates: start: 20140121
  25. HYDROCHLOROTHIAZIDE. [Concomitant]
     Active Substance: HYDROCHLOROTHIAZIDE
     Dosage: 25 MG, QD
     Route: 048
     Dates: start: 20140121
  26. PRAZOSIN [Concomitant]
     Active Substance: PRAZOSIN
     Dosage: 1 MG, UNK
     Route: 048
  27. HUMIRA [Concomitant]
     Active Substance: ADALIMUMAB
     Dosage: UNK UNK, Q2WK
     Dates: start: 201402
  28. HYDROXYCHLOROQUINE [Concomitant]
     Active Substance: HYDROXYCHLOROQUINE
     Dosage: 200 MG,QD, 2 TABLETS EVERY DAY
     Route: 048
     Dates: start: 20140121
  29. RANITIDINE                         /00550802/ [Concomitant]
     Dosage: 300 MG, QD
     Route: 048
     Dates: start: 20140121

REACTIONS (11)
  - Sepsis [Recovered/Resolved]
  - Sinusitis [Not Recovered/Not Resolved]
  - Back pain [Not Recovered/Not Resolved]
  - Dry mouth [Not Recovered/Not Resolved]
  - Ankylosing spondylitis [Not Recovered/Not Resolved]
  - Therapeutic response decreased [Not Recovered/Not Resolved]
  - Pseudocholinesterase deficiency [Not Recovered/Not Resolved]
  - Spondylolisthesis [Not Recovered/Not Resolved]
  - Labyrinthitis [Recovered/Resolved]
  - Musculoskeletal stiffness [Not Recovered/Not Resolved]
  - Bronchitis [Not Recovered/Not Resolved]

NARRATIVE: CASE EVENT DATE: 2013
